FAERS Safety Report 4967625-6 (Version None)
Quarter: 2006Q2

REPORT INFORMATION
  Report Type: 
  Country: None (occurrence: None)
  Receive Date: 20060407
  Receipt Date: 20060407
  Transmission Date: 20061013
  Serious: Yes (Hospitalization, Other)
  Sender: FDA-Public Use
  Company Number: None

PATIENT
  Sex: Male
  Weight: 77.27 kg

DRUGS (3)
  1. CISPLATIN [Suspect]
     Indication: HYPOPHARYNGEAL CANCER
     Dosage: 144.75 MG
     Dates: start: 20060314, end: 20060314
  2. CISPLATIN [Suspect]
     Indication: OROPHARYNGEAL CANCER STAGE UNSPECIFIED
     Dosage: 144.75 MG
     Dates: start: 20060314, end: 20060314
  3. TAXOTERE [Suspect]
     Dosage: 144.75 MG
     Dates: start: 20060314, end: 20060314

REACTIONS (5)
  - FEEDING TUBE COMPLICATION [None]
  - MELAENA [None]
  - NAUSEA [None]
  - VOMITING [None]
  - WOUND DRAINAGE [None]
